FAERS Safety Report 5300602-4 (Version None)
Quarter: 2007Q2

REPORT INFORMATION
  Report Type: 
  Country: None (occurrence: None)
  Receive Date: 20070418
  Receipt Date: 20070418
  Transmission Date: 20071010
  Serious: Yes (Other)
  Sender: FDA-Public Use
  Company Number: US-GLAXOSMITHKLINE-A0647560A

PATIENT
  Sex: Female

DRUGS (1)
  1. DEBROX DROPS [Suspect]
     Route: 001

REACTIONS (2)
  - DEAFNESS [None]
  - DRUG INEFFECTIVE [None]
